FAERS Safety Report 10481356 (Version 1)
Quarter: 2014Q3

REPORT INFORMATION
  Report Type: Spontaneous
  Country: US (occurrence: None)
  Receive Date: 20140908
  Receipt Date: 20140908
  Transmission Date: 20150326
  Serious: Yes (Other)
  Sender: FDA-Public Use
  Company Number: 385902

PATIENT
  Age: 65 Year
  Sex: Male
  Weight: 109.3 kg

DRUGS (8)
  1. METFORMIN [Concomitant]
     Active Substance: METFORMIN HYDROCHLORIDE
  2. ATORVASTATIN (ATORVASTATIN) [Concomitant]
     Active Substance: ATORVASTATIN
  3. OMEPRAZOLE (OMEPRAZOLE) [Concomitant]
     Active Substance: OMEPRAZOLE
  4. VICTOZA [Suspect]
     Active Substance: LIRAGLUTIDE
     Indication: TYPE 2 DIABETES MELLITUS
     Route: 058
     Dates: start: 20130225, end: 20130814
  5. ENALAPRIL HCT (ENALAPRIL MALEATE, HYDROCHLOROTHIAZIDE) [Concomitant]
  6. GLUCOTROL [Concomitant]
     Active Substance: GLIPIZIDE
  7. LOPRESSOR [Concomitant]
     Active Substance: METOPROLOL TARTRATE
  8. MOBIC [Concomitant]
     Active Substance: MELOXICAM

REACTIONS (2)
  - Cholelithiasis [None]
  - Pancreatitis [None]

NARRATIVE: CASE EVENT DATE: 20130725
